FAERS Safety Report 24956254 (Version 2)
Quarter: 2025Q1

REPORT INFORMATION
  Report Type: Report from Study
  Country: IT (occurrence: IT)
  Receive Date: 20250211
  Receipt Date: 20250224
  Transmission Date: 20250409
  Serious: Yes (Other)
  Sender: ABBVIE
  Company Number: IT-ABBVIE-6127732

PATIENT
  Age: 21 Year
  Sex: Male
  Weight: 60 kg

DRUGS (3)
  1. SKYRIZI [Suspect]
     Active Substance: RISANKIZUMAB-RZAA
     Indication: Crohn^s disease
     Dosage: 360MG/8WEEKS
     Route: 058
     Dates: start: 20240701
  2. Folina [Concomitant]
     Indication: Product used for unknown indication
     Route: 065
  3. CHOLECALCIFEROL [Concomitant]
     Active Substance: CHOLECALCIFEROL
     Indication: Product used for unknown indication
     Route: 065

REACTIONS (1)
  - Melanocytic naevus [Not Recovered/Not Resolved]

NARRATIVE: CASE EVENT DATE: 20240917
